FAERS Safety Report 5387603-5 (Version None)
Quarter: 2007Q3

REPORT INFORMATION
  Report Type: 
  Country: None (occurrence: None)
  Receive Date: 20070711
  Receipt Date: 20070711
  Transmission Date: 20080115
  Serious: Yes (Other)
  Sender: FDA-Public Use
  Company Number: None

PATIENT
  Sex: Female
  Weight: 68.0396 kg

DRUGS (3)
  1. CYMBALTA [Suspect]
     Indication: DEPRESSION
     Dosage: 30MG, THEN 60MG DAILY PO
     Route: 048
     Dates: start: 20060531, end: 20070604
  2. NAPROSYN [Concomitant]
  3. LOPERAMIDE HCL [Concomitant]

REACTIONS (1)
  - COLITIS COLLAGENOUS [None]
